FAERS Safety Report 4528241-3 (Version None)
Quarter: 2004Q4

REPORT INFORMATION
  Report Type: 
  Country: None (occurrence: None)
  Receive Date: 20041130
  Receipt Date: 20040802
  Transmission Date: 20050328
  Serious: No
  Sender: FDA-Public Use
  Company Number: WAES 0311USA00837

PATIENT

DRUGS (1)
  1. ZETIA [Suspect]
     Dosage: 10 MG DAILY PO
     Route: 048

REACTIONS (2)
  - MYALGIA [None]
  - MYOPATHY [None]
